FAERS Safety Report 4425931-8 (Version None)
Quarter: 2004Q3

REPORT INFORMATION
  Report Type: 
  Country: None (occurrence: None)
  Receive Date: 20040719
  Receipt Date: 20030827
  Transmission Date: 20050211
  Serious: Yes (Hospitalization)
  Sender: FDA-Public Use
  Company Number: 178474

PATIENT
  Age: 40 Year
  Sex: Female
  Weight: 125.1928 kg

DRUGS (8)
  1. AVONEX [Suspect]
     Indication: MULTIPLE SCLEROSIS
     Dosage: 30 MCG QW IM
     Route: 030
     Dates: start: 19980101, end: 20020101
  2. AVONEX [Suspect]
     Indication: MULTIPLE SCLEROSIS
     Dosage: 30 MCG QW IM
     Route: 030
     Dates: start: 20030201
  3. PROTONIX [Concomitant]
  4. IRON (NOS) [Concomitant]
  5. STOOL SOFTENER [Concomitant]
  6. ALPRAZOLAM [Concomitant]
  7. OXYBUTYNIN CHLORIDE [Concomitant]
  8. FLUOXETINE [Concomitant]

REACTIONS (9)
  - CHOLECYSTECTOMY [None]
  - CONTUSION [None]
  - CYST [None]
  - FALL [None]
  - INFLUENZA LIKE ILLNESS [None]
  - MULTIPLE SCLEROSIS RELAPSE [None]
  - SINUS HEADACHE [None]
  - STRESS SYMPTOMS [None]
  - UNEVALUABLE EVENT [None]
